FAERS Safety Report 23852079 (Version 6)
Quarter: 2024Q3

REPORT INFORMATION
  Report Type: Spontaneous
  Country: IT (occurrence: IT)
  Receive Date: 20240514
  Receipt Date: 20240921
  Transmission Date: 20241016
  Serious: Yes (Other)
  Sender: AUROBINDO
  Company Number: IT-BRISTOL-MYERS SQUIBB COMPANY-2024-046956

PATIENT
  Age: 66 Year
  Sex: Female
  Weight: 48 kg

DRUGS (8)
  1. CARBOPLATIN [Suspect]
     Active Substance: CARBOPLATIN
     Indication: Non-small cell lung cancer
     Dosage: 380 MILLIGRAM
     Route: 065
     Dates: start: 20240124
  2. PEMETREXED [Suspect]
     Active Substance: PEMETREXED
     Indication: Non-small cell lung cancer
     Dosage: 580 MILLIGRAM
     Route: 065
     Dates: start: 20240124
  3. IPILIMUMAB [Suspect]
     Active Substance: IPILIMUMAB
     Indication: Non-small cell lung cancer
     Dosage: 50 MILLIGRAM, EVERY 6 WEEK
     Route: 042
     Dates: start: 20240124
  4. NIVOLUMAB [Suspect]
     Active Substance: NIVOLUMAB
     Indication: Non-small cell lung cancer
     Dosage: 360 MILLIGRAM, EVERY 3 WEEK
     Route: 042
     Dates: start: 20240124, end: 20240124
  5. BISOPROLOL FUMARATE [Concomitant]
     Active Substance: BISOPROLOL FUMARATE
     Indication: Hypertension
     Dosage: 2.5 MILLIGRAM, ONCE A DAY (THERAPY START DATE: 01-JAN-1900)
     Route: 048
  6. Folina [Concomitant]
     Indication: Product used for unknown indication
     Dosage: 5 MILLIGRAM, ONCE A DAY
     Route: 048
     Dates: start: 20240101
  7. Dobetin [Concomitant]
     Indication: Product used for unknown indication
     Dosage: 1000 MICROGRAM, EVERY 2 MONTH
     Route: 030
     Dates: end: 20240109
  8. BROTIZOLAM [Concomitant]
     Active Substance: BROTIZOLAM
     Indication: Product used for unknown indication
     Dosage: 0.25 MILLIGRAM, ONCE A DAY (30 CPR1 DIETHERAPY START DATE: 01-JAN-1900)
     Route: 048
     Dates: end: 20240227

REACTIONS (10)
  - Hyperthyroidism [Recovered/Resolved]
  - Hypothyroidism [Recovering/Resolving]
  - Productive cough [Recovered/Resolved]
  - Hypomagnesaemia [Recovered/Resolved]
  - Back pain [Recovered/Resolved]
  - Periorbital oedema [Recovered/Resolved]
  - Pain [Recovered/Resolved]
  - Oedema peripheral [Recovered/Resolved]
  - Mucosal inflammation [Recovered/Resolved]
  - Prescribed overdose [Unknown]

NARRATIVE: CASE EVENT DATE: 20240304
